FAERS Safety Report 17576271 (Version 3)
Quarter: 2022Q1

REPORT INFORMATION
  Report Type: Spontaneous
  Country: CH (occurrence: CH)
  Receive Date: 20200324
  Receipt Date: 20220131
  Transmission Date: 20220424
  Serious: Yes (Other)
  Sender: FDA-Public Use
  Company Number: CH-SM-2020-11558

PATIENT
  Age: 89 Year
  Sex: Male
  Weight: 58 kg

DRUGS (9)
  1. LISINOPRIL [Interacting]
     Active Substance: LISINOPRIL
     Indication: Hypertension
     Dosage: 10 MILLIGRAM DAILY; PRE-EXISTING LONG-TERM TREATMENT
     Route: 048
     Dates: end: 202002
  2. IBUPROFEN ARGININE [Interacting]
     Active Substance: IBUPROFEN ARGININE
     Indication: Pain in extremity
     Dosage: 3200 MILLIGRAM DAILY;
     Route: 048
     Dates: start: 20200203, end: 20200210
  3. ASPIRIN [Concomitant]
     Active Substance: ASPIRIN
     Dates: end: 202002
  4. ROSUVASTATIN CALCIUM [Concomitant]
     Active Substance: ROSUVASTATIN CALCIUM
     Dates: end: 202002
  5. LANTUS [Concomitant]
     Active Substance: INSULIN GLARGINE
     Dates: end: 202002
  6. METFORMIN HYDROCHLORIDE [Concomitant]
     Active Substance: METFORMIN HYDROCHLORIDE
     Dates: end: 202002
  7. PANTOPRAZOLE SODIUM [Concomitant]
     Active Substance: PANTOPRAZOLE SODIUM
     Dates: end: 202002
  8. LINAGLIPTIN [Concomitant]
     Active Substance: LINAGLIPTIN
  9. PRADIF T [Concomitant]
     Active Substance: TAMSULOSIN HYDROCHLORIDE
     Dates: end: 202002

REACTIONS (2)
  - Acute kidney injury [Recovering/Resolving]
  - Drug interaction [Recovering/Resolving]

NARRATIVE: CASE EVENT DATE: 20200203
